FAERS Safety Report 5952025-2 (Version None)
Quarter: 2008Q4

REPORT INFORMATION
  Report Type: 
  Country: None (occurrence: None)
  Receive Date: 20081113
  Receipt Date: 20071207
  Transmission Date: 20090506
  Serious: No
  Sender: FDA-Public Use
  Company Number: A0697935A

PATIENT
  Age: 49 Year
  Sex: Male

DRUGS (11)
  1. CARVEDILOL [Suspect]
     Dosage: 25MG TWICE PER DAY
     Route: 048
  2. LASIX [Concomitant]
  3. LISINOPRIL [Concomitant]
  4. SPIRONOLACTONE [Concomitant]
  5. METFORMIN HCL [Concomitant]
  6. GLYBURIDE [Concomitant]
  7. NITROGLYCERIN [Concomitant]
  8. HYDROCODONE [Concomitant]
  9. RANITIDINE [Concomitant]
  10. UNKNOWN MEDICATION [Concomitant]
  11. ASPIRIN [Concomitant]

REACTIONS (1)
  - DIZZINESS [None]
